FAERS Safety Report 5694475-8 (Version None)
Quarter: 2008Q2

REPORT INFORMATION
  Report Type: 
  Country: None (occurrence: None)
  Receive Date: 20080404
  Receipt Date: 20080328
  Transmission Date: 20081010
  Serious: Yes (Hospitalization)
  Sender: FDA-Public Use
  Company Number: NZ-NOVOPROD-273524

PATIENT
  Sex: Female

DRUGS (1)
  1. NOVORAPID [Suspect]
     Indication: DIABETES MELLITUS
     Dosage: 15 IU, UNK

REACTIONS (3)
  - CARDIAC ARREST [None]
  - CONVULSION [None]
  - HYPOGLYCAEMIA [None]
